FAERS Safety Report 14596486 (Version 1)
Quarter: 2018Q1

REPORT INFORMATION
  Report Type: Spontaneous
  Country: GB (occurrence: GB)
  Receive Date: 20180304
  Receipt Date: 20180304
  Transmission Date: 20180509
  Serious: Yes (Disabling, Other)
  Sender: FDA-Public Use
  Company Number: GB-CONCORDIA PHARMACEUTICALS INC.-E2B_00010352

PATIENT
  Age: 63 Year
  Sex: Male
  Weight: 98 kg

DRUGS (13)
  1. PREDNISOLONE. [Suspect]
     Active Substance: PREDNISOLONE
     Indication: PSORIATIC ARTHROPATHY
     Dosage: 3 WEEKS AT  15MG; 3 WEEKS AT 10MG; NOW 3 WEEKS AT 5MG
     Route: 048
     Dates: start: 20161230
  2. PREDNISOLONE. [Suspect]
     Active Substance: PREDNISOLONE
     Indication: PSORIATIC ARTHROPATHY
     Dosage: 3 WEEKS AT 15MG; 3 WEEKS AT 10MG; NOW 3 WEEKS AT 5MG
     Route: 048
     Dates: start: 20161118, end: 20161209
  3. METHOTREXATE. [Concomitant]
     Active Substance: METHOTREXATE
  4. CODEINE [Concomitant]
     Active Substance: CODEINE
     Indication: ANALGESIC THERAPY
     Dosage: OCCASIONAL PAIN RELIEF.; AS REQUIRED
  5. FOLIC ACID. [Concomitant]
     Active Substance: FOLIC ACID
  6. PREDNISOLONE. [Suspect]
     Active Substance: PREDNISOLONE
     Indication: PSORIATIC ARTHROPATHY
     Dosage: 3 WEEKS AT 15MG; 3 WEEKS AT 10MG; NOW 3 WEEKS AT 5MG
     Route: 048
     Dates: start: 20161209, end: 20161230
  7. TAMSULOSIN [Concomitant]
     Active Substance: TAMSULOSIN
  8. ZOPICLONE [Concomitant]
     Active Substance: ZOPICLONE
     Dosage: OCCASIONAL USE.; AS REQUIRED
  9. TRAMADOL. [Concomitant]
     Active Substance: TRAMADOL
     Indication: ANALGESIC THERAPY
     Dosage: 50 OR 100MG, OCCASIONAL PAIN RELIEF.; AS REQUIRED
  10. LANSOPRAZOLE. [Concomitant]
     Active Substance: LANSOPRAZOLE
  11. USTEKINUMAB [Concomitant]
     Active Substance: USTEKINUMAB
     Dates: start: 20160914
  12. CLOPIDOGREL [Concomitant]
     Active Substance: CLOPIDOGREL BISULFATE
  13. ATORVASTATIN [Concomitant]
     Active Substance: ATORVASTATIN

REACTIONS (2)
  - Agitated depression [Not Recovered/Not Resolved]
  - Abnormal weight gain [Not Recovered/Not Resolved]

NARRATIVE: CASE EVENT DATE: 20161210
